FAERS Safety Report 6063830-9 (Version None)
Quarter: 2009Q1

REPORT INFORMATION
  Report Type: 
  Country: None (occurrence: None)
  Receive Date: 20090204
  Receipt Date: 20090123
  Transmission Date: 20090719
  Serious: Yes (Other)
  Sender: FDA-Public Use
  Company Number: HQWYE422029AUG03

PATIENT
  Sex: Female
  Weight: 67.19 kg

DRUGS (2)
  1. PREMARIN [Suspect]
     Indication: MENOPAUSE
     Dosage: UNSPECIFIED
     Route: 048
  2. PREMPRO [Suspect]
     Indication: MENOPAUSE
     Dosage: UNKNOWN
     Route: 048

REACTIONS (1)
  - BREAST CANCER METASTATIC [None]
